FAERS Safety Report 23721497 (Version 2)
Quarter: 2024Q2

REPORT INFORMATION
  Report Type: Report from Study
  Country: EG (occurrence: None)
  Receive Date: 20240409
  Receipt Date: 20240620
  Transmission Date: 20240716
  Serious: Yes (Other)
  Sender: FDA-Public Use
  Company Number: 2024A083170

PATIENT
  Sex: Female

DRUGS (3)
  1. IMFINZI [Suspect]
     Active Substance: DURVALUMAB
     Indication: Cholangiocarcinoma
     Route: 041
     Dates: start: 20240217
  2. GEMCITABINE [Concomitant]
     Active Substance: GEMCITABINE
     Dosage: 1000MG/M2 D1.D8
  3. CARBOPLATIN [Concomitant]
     Active Substance: CARBOPLATIN
     Dosage: 5 AUC D1

REACTIONS (2)
  - Immunodeficiency [Unknown]
  - Jaundice [Unknown]
